FAERS Safety Report 4308661-2 (Version None)
Quarter: 2004Q1

REPORT INFORMATION
  Report Type: 
  Country: None (occurrence: None)
  Receive Date: 20040301
  Receipt Date: 20040220
  Transmission Date: 20041129
  Serious: Yes (Death)
  Sender: FDA-Public Use
  Company Number: MK200402-0207-1

PATIENT
  Age: 38 Year
  Sex: Female

DRUGS (2)
  1. OXYCODONE AND ACETAMINOPHEN [Suspect]
  2. PROPOXYPHENE [Suspect]

REACTIONS (4)
  - COLITIS ISCHAEMIC [None]
  - PULMONARY GRANULOMA [None]
  - SUDDEN DEATH [None]
  - TOXICOLOGIC TEST ABNORMAL [None]
